FAERS Safety Report 14219800 (Version 1)
Quarter: 2017Q4

REPORT INFORMATION
  Report Type: Spontaneous
  Country: US (occurrence: US)
  Receive Date: 20171123
  Receipt Date: 20171123
  Transmission Date: 20180321
  Serious: Yes (Hospitalization)
  Sender: FDA-Public Use
  Company Number: US-JNJFOC-20171125192

PATIENT
  Age: 74 Year
  Sex: Female

DRUGS (1)
  1. STELARA [Suspect]
     Active Substance: USTEKINUMAB
     Indication: CROHN^S DISEASE
     Route: 058
     Dates: start: 201702

REACTIONS (9)
  - Internal haemorrhage [Unknown]
  - Loss of consciousness [Unknown]
  - Pyrexia [Unknown]
  - Haematemesis [Unknown]
  - Blood magnesium decreased [Unknown]
  - Weight decreased [Unknown]
  - Gait inability [Unknown]
  - Gastric ulcer [Unknown]
  - Defaecation urgency [Unknown]

NARRATIVE: CASE EVENT DATE: 2017
